FAERS Safety Report 18325705 (Version 1)
Quarter: 2020Q3

REPORT INFORMATION
  Report Type: Spontaneous
  Country: TW (occurrence: TW)
  Receive Date: 20200929
  Receipt Date: 20200929
  Transmission Date: 20201103
  Serious: Yes (Life-Threatening, Hospitalization, Other)
  Sender: FDA-Public Use
  Company Number: TW-B.I. PHARMACEUTICALS,INC./RIDGEFIELD-2020-BI-051302

PATIENT
  Age: 62 Year
  Sex: Male
  Weight: 61.8 kg

DRUGS (1)
  1. GLYXAMBI [Suspect]
     Active Substance: EMPAGLIFLOZIN\LINAGLIPTIN
     Indication: PRODUCT USED FOR UNKNOWN INDICATION
     Dates: start: 20200821, end: 20200907

REACTIONS (9)
  - Arteriosclerosis coronary artery [Unknown]
  - Mallory-Weiss syndrome [Unknown]
  - Oesophagitis ulcerative [Unknown]
  - Hypophosphataemia [Unknown]
  - Atrioventricular block complete [Recovered/Resolved]
  - Diabetic ketoacidosis [Recovered/Resolved]
  - Duodenal ulcer [Unknown]
  - Coagulation time shortened [Unknown]
  - Hiatus hernia [Unknown]

NARRATIVE: CASE EVENT DATE: 20200901
